FAERS Safety Report 21582065 (Version 1)
Quarter: 2022Q4

REPORT INFORMATION
  Report Type: Spontaneous
  Country: IT (occurrence: IT)
  Receive Date: 20221111
  Receipt Date: 20221111
  Transmission Date: 20230113
  Serious: Yes (Death, Other)
  Sender: FDA-Public Use
  Company Number: IT-ANTARES PHARMA, INC.-2022-LIT-TU-0003

PATIENT

DRUGS (13)
  1. TESTOSTERONE UNDECANOATE [Suspect]
     Active Substance: TESTOSTERONE UNDECANOATE
     Indication: Product used for unknown indication
     Dosage: UNK, UNKNOWN
     Route: 065
  2. TESTOSTERONE ENANTHATE [Suspect]
     Active Substance: TESTOSTERONE ENANTHATE
     Indication: Product used for unknown indication
     Dosage: UNK, UNKNOWN
     Route: 065
  3. CLENBUTEROL [Suspect]
     Active Substance: CLENBUTEROL
     Indication: Product used for unknown indication
  4. DROMOSTANOLONE [Suspect]
     Active Substance: DROMOSTANOLONE
     Indication: Product used for unknown indication
  5. STANOZOLOL [Suspect]
     Active Substance: STANOZOLOL
     Indication: Product used for unknown indication
  6. TESTOSTERONE DECANOATE [Suspect]
     Active Substance: TESTOSTERONE DECANOATE
     Indication: Product used for unknown indication
  7. TESTOSTERONE CYPIONATE [Suspect]
     Active Substance: TESTOSTERONE CYPIONATE
     Indication: Product used for unknown indication
  8. TESTOSTERONE PROPIONATE [Suspect]
     Active Substance: TESTOSTERONE PROPIONATE
     Indication: Product used for unknown indication
  9. METHANDROSTENOLONE [Suspect]
     Active Substance: METHANDROSTENOLONE
     Indication: Product used for unknown indication
  10. METHENOLONE ENANTHATE [Suspect]
     Active Substance: METHENOLONE ENANTHATE
     Indication: Product used for unknown indication
  11. TRENBOLONE [Suspect]
     Active Substance: TRENBOLONE
     Indication: Product used for unknown indication
  12. ANDROSTENEDIONE [Suspect]
     Active Substance: ANDROSTENEDIONE
     Indication: Product used for unknown indication
  13. BOLDENONE PROPIONATE [Suspect]
     Active Substance: BOLDENONE PROPIONATE
     Indication: Product used for unknown indication

REACTIONS (8)
  - Drug abuse [Fatal]
  - Cerebral congestion [Fatal]
  - Spleen congestion [Fatal]
  - Congestive hepatopathy [Fatal]
  - Pulmonary oedema [Fatal]
  - Pulmonary haemorrhage [Fatal]
  - Cardiomegaly [Fatal]
  - Vascular wall hypertrophy [Fatal]
